FAERS Safety Report 7717380-1 (Version None)
Quarter: 2011Q3

REPORT INFORMATION
  Report Type: 
  Country: None (occurrence: None)
  Receive Date: 20110830
  Receipt Date: 20110825
  Transmission Date: 20111222
  Serious: Yes (Life-Threatening, Hospitalization)
  Sender: FDA-Public Use
  Company Number: BR-JNJFOC-20110704830

PATIENT
  Age: 47 Year
  Sex: Female
  Weight: 90 kg

DRUGS (7)
  1. FOLIC ACID [Concomitant]
     Indication: RHEUMATOID ARTHRITIS
     Dosage: FREQUENCY ^QS^
     Route: 048
     Dates: start: 19980101, end: 20110710
  2. METHOTREXATE [Concomitant]
     Indication: RHEUMATOID ARTHRITIS
     Dosage: FREQUENCY ^QS^
     Route: 048
     Dates: start: 19880101, end: 20110710
  3. GOLIMUMAB [Suspect]
     Indication: RHEUMATOID ARTHRITIS
     Route: 058
     Dates: start: 20101011, end: 20110628
  4. LEFLUNOMIDE [Concomitant]
     Indication: RHEUMATOID ARTHRITIS
     Dates: start: 20090101, end: 20110710
  5. INDAPAMIDE [Concomitant]
     Indication: HYPERTENSION
     Dates: start: 20080101
  6. COZAAR [Concomitant]
     Indication: HYPERTENSION
     Route: 048
     Dates: start: 20080101
  7. PREDNISONE [Concomitant]
     Indication: ARTHRALGIA
     Dates: start: 19830101

REACTIONS (1)
  - COLON CANCER [None]
